FAERS Safety Report 12995706 (Version 1)
Quarter: 2016Q4

REPORT INFORMATION
  Report Type: Report from Study
  Country: None (occurrence: NL)
  Receive Date: 20161202
  Receipt Date: 20161202
  Transmission Date: 20170207
  Serious: Yes (Other)
  Sender: FDA-Public Use
  Company Number: NL-ABBVIE-16P-114-1798989-00

PATIENT
  Sex: Male

DRUGS (2)
  1. DUODOPA [Suspect]
     Active Substance: CARBIDOPA\LEVODOPA
     Indication: PARKINSON^S DISEASE
     Dosage: MD: 18.0, CD: 4.9, ED: 4.5
     Route: 050
     Dates: start: 20140616
  2. RIVASTIGMINE. [Concomitant]
     Active Substance: RIVASTIGMINE
     Indication: PRODUCT USED FOR UNKNOWN INDICATION

REACTIONS (4)
  - Cognitive disorder [Not Recovered/Not Resolved]
  - Bradykinesia [Not Recovered/Not Resolved]
  - Incontinence [Not Recovered/Not Resolved]
  - Cataract [Not Recovered/Not Resolved]
